FAERS Safety Report 6114154-2 (Version None)
Quarter: 2009Q1

REPORT INFORMATION
  Report Type: 
  Country: None (occurrence: None)
  Receive Date: 20090312
  Receipt Date: 20080411
  Transmission Date: 20090719
  Serious: No
  Sender: FDA-Public Use
  Company Number: US-ABBOTT-08P-163-0446925-00

PATIENT
  Sex: Male

DRUGS (3)
  1. DEPAKOTE [Suspect]
     Indication: BIPOLAR DISORDER
     Route: 048
  2. CLOZAPINE [Suspect]
     Indication: BIPOLAR DISORDER
     Route: 048
     Dates: start: 20080320, end: 20080410
  3. PRIMIDONE [Suspect]
     Indication: BIPOLAR DISORDER

REACTIONS (3)
  - ASTERIXIS [None]
  - DRUG LEVEL INCREASED [None]
  - WHITE BLOOD CELL COUNT INCREASED [None]
